FAERS Safety Report 21349632 (Version 2)
Quarter: 2022Q4

REPORT INFORMATION
  Report Type: Report from Study
  Country: US (occurrence: US)
  Receive Date: 20220919
  Receipt Date: 20221006
  Transmission Date: 20230113
  Serious: Yes (Hospitalization, Other)
  Sender: FDA-Public Use
  Company Number: US-HORIZON THERAPEUTICS-HZN-2022-007021

PATIENT

DRUGS (1)
  1. KRYSTEXXA [Suspect]
     Active Substance: PEGLOTICASE
     Indication: Gout
     Dosage: 8 MG, ONCE
     Route: 042
     Dates: start: 20220909, end: 20220909

REACTIONS (5)
  - Dizziness [Not Recovered/Not Resolved]
  - Hypoxia [Not Recovered/Not Resolved]
  - Anaemia [Unknown]
  - Methaemoglobinaemia [Unknown]
  - Glucose-6-phosphate dehydrogenase deficiency [Not Recovered/Not Resolved]

NARRATIVE: CASE EVENT DATE: 20220901
